FAERS Safety Report 9363765 (Version 1)
Quarter: 2013Q2

REPORT INFORMATION
  Report Type: Spontaneous
  Country: US (occurrence: US)
  Receive Date: 20130624
  Receipt Date: 20130624
  Transmission Date: 20140414
  Serious: Yes (Life-Threatening, Hospitalization)
  Sender: FDA-Public Use
  Company Number: 2013SP001762

PATIENT
  Age: 33 Year
  Sex: Male
  Weight: 83 kg

DRUGS (5)
  1. XOPENEX (UNKNOWN FORMULATION) [Suspect]
     Indication: ASTHMA
     Route: 055
     Dates: start: 20120206
  2. SPIRIVA [Concomitant]
     Indication: ASTHMA
     Dates: start: 20130314
  3. SINGULAIR [Concomitant]
     Indication: ASTHMA
     Dates: start: 20120112
  4. ZYRTEC [Concomitant]
     Indication: HYPERSENSITIVITY
  5. SYMBICORT [Concomitant]
     Indication: ASTHMA
     Dates: start: 20130312

REACTIONS (1)
  - Pulmonary embolism [Recovered/Resolved]
